FAERS Safety Report 4630467-5 (Version None)
Quarter: 2005Q2

REPORT INFORMATION
  Report Type: 
  Country: None (occurrence: None)
  Receive Date: 20050406
  Receipt Date: 20050322
  Transmission Date: 20051028
  Serious: Yes (Hospitalization, Other)
  Sender: FDA-Public Use
  Company Number: USA041082055

PATIENT
  Age: 30 Year
  Sex: Female
  Weight: 87 kg

DRUGS (3)
  1. HUMULIN R [Suspect]
     Indication: GESTATIONAL DIABETES
     Dosage: 10 U/1 IN THE MORNING
     Dates: start: 20041001, end: 20041001
  2. HUMULIN N [Suspect]
     Indication: GESTATIONAL DIABETES
     Dosage: 20 U/1 IN THE MORNING
     Dates: start: 20041001, end: 20041001
  3. NOVOLIN (INSULIN HUMAN INJECTION, ISOPHANE) [Concomitant]

REACTIONS (17)
  - ABDOMINAL PAIN UPPER [None]
  - ANOREXIA [None]
  - BACK PAIN [None]
  - CAESAREAN SECTION [None]
  - DIABETES MELLITUS INADEQUATE CONTROL [None]
  - DRUG EXPOSURE DURING PREGNANCY [None]
  - DRUG HYPERSENSITIVITY [None]
  - DRY SKIN [None]
  - HAEMORRHAGIC CYST [None]
  - HYPERTENSION [None]
  - HYPOAESTHESIA [None]
  - HYSTERECTOMY [None]
  - INJECTION SITE RASH [None]
  - PHARMACEUTICAL PRODUCT COMPLAINT [None]
  - RENAL FAILURE [None]
  - THERAPY NON-RESPONDER [None]
  - UTERINE CONTRACTIONS DURING PREGNANCY [None]
